FAERS Safety Report 8563766-5 (Version None)
Quarter: 2012Q3

REPORT INFORMATION
  Report Type: 
  Country: None (occurrence: None)
  Receive Date: 20120803
  Receipt Date: 20120725
  Transmission Date: 20120928
  Serious: Yes (Hospitalization)
  Sender: FDA-Public Use
  Company Number: US-BRISTOL-MYERS SQUIBB COMPANY-16802878

PATIENT
  Age: 48 Year
  Sex: Male

DRUGS (1)
  1. COUMADIN [Suspect]

REACTIONS (2)
  - THROMBOSIS [None]
  - INTERNATIONAL NORMALISED RATIO INCREASED [None]
